FAERS Safety Report 25533189 (Version 1)
Quarter: 2025Q3

REPORT INFORMATION
  Report Type: Spontaneous
  Country: US (occurrence: US)
  Receive Date: 20250709
  Receipt Date: 20250709
  Transmission Date: 20251021
  Serious: Yes (Hospitalization, Other)
  Sender: ALKEM
  Company Number: US-ALKEM LABORATORIES LIMITED-US-ALKEM-2025-07093

PATIENT
  Age: 44 Year
  Sex: Male

DRUGS (6)
  1. BUPRENORPHINE AND NALOXONE [Suspect]
     Active Substance: BUPRENORPHINE HYDROCHLORIDE\NALOXONE HYDROCHLORIDE
     Indication: Substance use
     Route: 065
  2. BUPRENORPHINE AND NALOXONE [Suspect]
     Active Substance: BUPRENORPHINE HYDROCHLORIDE\NALOXONE HYDROCHLORIDE
     Route: 065
  3. BUPRENORPHINE AND NALOXONE [Suspect]
     Active Substance: BUPRENORPHINE HYDROCHLORIDE\NALOXONE HYDROCHLORIDE
     Route: 065
  4. HEROIN [Concomitant]
     Active Substance: DIAMORPHINE
     Indication: Substance use
     Route: 065
  5. HYDROCODONE [Concomitant]
     Active Substance: HYDROCODONE
     Indication: Pain
     Route: 065
  6. METHAMPHETAMINE [Concomitant]
     Active Substance: METHAMPHETAMINE
     Indication: Substance use
     Route: 065

REACTIONS (12)
  - Suicidal ideation [Unknown]
  - Hepatitis C [Recovered/Resolved]
  - Drug use disorder [Unknown]
  - Drug dependence [Unknown]
  - Tremor [Unknown]
  - Withdrawal syndrome [Unknown]
  - Restlessness [Unknown]
  - Nausea [Unknown]
  - Anxiety [Unknown]
  - Hyperhidrosis [Unknown]
  - Piloerection [Unknown]
  - Prescription drug used without a prescription [Unknown]
